FAERS Safety Report 16324479 (Version 1)
Quarter: 2019Q2

REPORT INFORMATION
  Report Type: Spontaneous
  Country: US (occurrence: US)
  Receive Date: 20190516
  Receipt Date: 20190516
  Transmission Date: 20190711
  Serious: No
  Sender: FDA-Public Use
  Company Number: None

PATIENT
  Age: 22 Year
  Sex: Female
  Weight: 69.75 kg

DRUGS (2)
  1. TECFIDERA [Suspect]
     Active Substance: DIMETHYL FUMARATE
     Indication: RELAPSING-REMITTING MULTIPLE SCLEROSIS
     Route: 048
     Dates: start: 20190327, end: 20190509
  2. CYMBALTA 30MG DAILY [Concomitant]
     Dates: start: 20190327, end: 20190516

REACTIONS (4)
  - Scab [None]
  - Photosensitivity reaction [None]
  - Blister [None]
  - Skin hyperpigmentation [None]

NARRATIVE: CASE EVENT DATE: 20190509
